FAERS Safety Report 4514054-5 (Version None)
Quarter: 2004Q4

REPORT INFORMATION
  Report Type: 
  Country: None (occurrence: None)
  Receive Date: 20041130
  Receipt Date: 20040819
  Transmission Date: 20050328
  Serious: Yes (Hospitalization)
  Sender: FDA-Public Use
  Company Number: GB-GLAXOSMITHKLINE-B0343026A

PATIENT
  Age: 7 Month
  Sex: Female

DRUGS (4)
  1. ZANTAC [Suspect]
     Indication: VOMITING
     Dosage: 1.3ML TWICE PER DAY
     Route: 048
     Dates: start: 20040816
  2. GAVISCON [Concomitant]
  3. PREJOMIN [Concomitant]
  4. MODIFIED STARCH [Concomitant]

REACTIONS (2)
  - CONDITION AGGRAVATED [None]
  - VOMITING [None]
